FAERS Safety Report 9293791 (Version 2)
Quarter: 2013Q4

REPORT INFORMATION
  Report Type: Spontaneous
  Country: US (occurrence: US)
  Receive Date: 20130516
  Receipt Date: 20131107
  Transmission Date: 20140711
  Serious: Yes (Death, Hospitalization, Other)
  Sender: FDA-Public Use
  Company Number: US-B.I. PHARMACEUTICALS,INC./RIDGEFIELD-2013-BI-13754BP

PATIENT
  Age: 81 Year
  Sex: Male

DRUGS (12)
  1. PRADAXA [Suspect]
     Indication: ANTICOAGULANT THERAPY
     Dosage: 300 MG
     Route: 048
     Dates: start: 20110215, end: 20120404
  2. KLOR-CON [Concomitant]
     Dosage: 10 MEQ
  3. MICARDIS HCT [Concomitant]
  4. SPIRIVA HANDIHALER [Concomitant]
     Dosage: 18 MCG
  5. VITAMIN D [Concomitant]
     Dosage: 2000 U
  6. VITAMIN D [Concomitant]
     Dosage: 7142.8571 U
  7. LIOTHYRONINE SODIUM [Concomitant]
     Dosage: 6.75 MCG
  8. TRANXENE-T [Concomitant]
  9. AMIODARONE HCL [Concomitant]
     Dosage: 200 MG
  10. AMLODIPINE BESYLATE [Concomitant]
     Dosage: 10 MG
  11. METOPROLOL TARTRATE [Concomitant]
     Dosage: 100 MG
  12. LEVOTHYROXINE SODIUM [Concomitant]
     Dosage: 150 MCG

REACTIONS (8)
  - Gastrointestinal haemorrhage [Fatal]
  - Oesophageal carcinoma [Fatal]
  - Pancytopenia [Unknown]
  - Septic shock [Unknown]
  - Anaemia [Unknown]
  - Thrombocytopenia [Unknown]
  - Acute myocardial infarction [Unknown]
  - Contusion [Unknown]
